FAERS Safety Report 9531111 (Version 1)
Quarter: 2013Q3

REPORT INFORMATION
  Report Type: Spontaneous
  Country: US (occurrence: None)
  Receive Date: 20130916
  Receipt Date: 20130916
  Transmission Date: 20140515
  Serious: Yes (Other)
  Sender: FDA-Public Use
  Company Number: None

PATIENT
  Age: 70 Year
  Sex: Female
  Weight: 74.39 kg

DRUGS (3)
  1. ESCITALOPRAM [Suspect]
     Indication: DEPRESSION
     Dosage: 1; ONCE DAILY
     Route: 048
     Dates: start: 20120101, end: 20130828
  2. ESCITALOPRAM [Suspect]
     Indication: ANXIETY
     Dosage: 1; ONCE DAILY
     Route: 048
     Dates: start: 20120101, end: 20130828
  3. ESCITALOPRAM [Suspect]
     Indication: PANIC ATTACK
     Dosage: 1; ONCE DAILY
     Route: 048
     Dates: start: 20120101, end: 20130828

REACTIONS (7)
  - Product substitution issue [None]
  - Heart rate irregular [None]
  - Insomnia [None]
  - Panic attack [None]
  - Suicidal ideation [None]
  - Depression [None]
  - Anxiety [None]
